FAERS Safety Report 6758596-0 (Version None)
Quarter: 2010Q2

REPORT INFORMATION
  Report Type: 
  Country: None (occurrence: None)
  Receive Date: 20100607
  Receipt Date: 20100602
  Transmission Date: 20101027
  Serious: Yes (Other)
  Sender: FDA-Public Use
  Company Number: NL-ROCHE-707191

PATIENT
  Sex: Female

DRUGS (6)
  1. TRASTUZUMAB [Suspect]
     Indication: BREAST CANCER
     Dosage: FREQUENCY REPORTED AS WEEKLY.
     Route: 042
     Dates: start: 20091110
  2. TRASTUZUMAB [Suspect]
     Dosage: FREQUENCY REPORTED AS WEEKLY.
     Route: 042
     Dates: start: 20100310
  3. PACLITAXEL [Suspect]
     Indication: BREAST CANCER
     Dosage: FREQUENCY REPORTED AS WEEKLY.
     Route: 042
     Dates: start: 20091110
  4. PACLITAXEL [Suspect]
     Route: 042
     Dates: start: 20100310
  5. CARBOPLATIN [Suspect]
     Indication: BREAST CANCER
     Dosage: FREQUENCY REPORTED AS WEEKLY.
     Route: 042
     Dates: start: 20091110
  6. CARBOPLATIN [Suspect]
     Dosage: FREQUENCY REPORTED AS WEEKLY.
     Route: 042
     Dates: start: 20100310

REACTIONS (1)
  - ATRIAL FIBRILLATION [None]
